FAERS Safety Report 5194130-7 (Version None)
Quarter: 2006Q4

REPORT INFORMATION
  Report Type: 
  Country: None (occurrence: None)
  Receive Date: 20061220
  Receipt Date: 20061212
  Transmission Date: 20070319
  Serious: Yes (Death)
  Sender: FDA-Public Use
  Company Number: HQWYE942113DEC06

PATIENT
  Age: 62 Year
  Sex: Female

DRUGS (2)
  1. EFFEXOR XR [Suspect]
     Indication: DEPRESSION
     Dosage: 450 MG 1X PER 1 DAY, ORAL
     Route: 048
  2. VALIUM [Concomitant]

REACTIONS (1)
  - DRUG TOXICITY [None]
